FAERS Safety Report 8006346-2 (Version None)
Quarter: 2011Q4

REPORT INFORMATION
  Report Type: 
  Country: None (occurrence: None)
  Receive Date: 20111226
  Receipt Date: 20111221
  Transmission Date: 20120403
  Serious: Yes (Hospitalization)
  Sender: FDA-Public Use
  Company Number: PHHY2011AU105054

PATIENT
  Sex: Female
  Weight: 50 kg

DRUGS (1)
  1. ZOLEDRONOC ACID [Suspect]
     Indication: OSTEOPOROSIS
     Dosage: UNK
     Route: 042
     Dates: start: 20111123

REACTIONS (7)
  - BONE PAIN [None]
  - LETHARGY [None]
  - CHILLS [None]
  - MALAISE [None]
  - SYNCOPE [None]
  - DIZZINESS [None]
  - CIRCULATORY COLLAPSE [None]
